FAERS Safety Report 15787625 (Version 3)
Quarter: 2019Q1

REPORT INFORMATION
  Report Type: Report from Study
  Country: CA (occurrence: CA)
  Receive Date: 20190103
  Receipt Date: 20190227
  Transmission Date: 20190417
  Serious: Yes (Death, Other)
  Sender: FDA-Public Use
  Company Number: CA-BRISTOL-MYERS SQUIBB COMPANY-BMS-2018-110250

PATIENT
  Age: 68 Year
  Sex: Female

DRUGS (2)
  1. NIVOLUMAB [Suspect]
     Active Substance: NIVOLUMAB
     Indication: MALIGNANT MELANOMA
     Dosage: 1 MG/KG, Q3WK
     Route: 042
     Dates: start: 20181107, end: 20181228
  2. YERVOY [Suspect]
     Active Substance: IPILIMUMAB
     Indication: MALIGNANT MELANOMA
     Dosage: 3 MG/KG, Q3WK
     Route: 042
     Dates: start: 20181107, end: 20181228

REACTIONS (15)
  - Cough [Unknown]
  - Pruritus [Unknown]
  - Rash [Unknown]
  - Malignant neoplasm progression [Fatal]
  - Joint swelling [Unknown]
  - Visual impairment [Unknown]
  - Decreased appetite [Unknown]
  - Insomnia [Unknown]
  - Dyspnoea [Unknown]
  - Vomiting [Unknown]
  - Fatigue [Unknown]
  - Haematuria [Unknown]
  - Weight fluctuation [Unknown]
  - Nausea [Recovering/Resolving]
  - Chromaturia [Unknown]

NARRATIVE: CASE EVENT DATE: 20181107
